FAERS Safety Report 4749824-1 (Version None)
Quarter: 2005Q3

REPORT INFORMATION
  Report Type: 
  Country: None (occurrence: None)
  Receive Date: 20050822
  Receipt Date: 20050815
  Transmission Date: 20060218
  Serious: Yes (Other)
  Sender: FDA-Public Use
  Company Number: 200517276GDDC

PATIENT
  Age: 49 Year
  Sex: Female

DRUGS (27)
  1. LANTUS [Suspect]
     Indication: DIABETES MELLITUS INSULIN-DEPENDENT
     Route: 058
     Dates: start: 20050815, end: 20050815
  2. QUININE SULFATE [Concomitant]
  3. ADALAT [Concomitant]
  4. MONOCOR [Concomitant]
  5. LIPITOR [Concomitant]
  6. PANTOPRAZOLE SODIUM [Concomitant]
  7. NEURONTIN [Concomitant]
  8. CELEXA [Concomitant]
  9. CALCIUM GLUCONATE [Concomitant]
  10. ATIVAN [Concomitant]
  11. HUMULIN N [Concomitant]
     Dosage: DOSE UNIT: UNITS
  12. CORTEF [Concomitant]
  13. ARANESP [Concomitant]
  14. FLOVENT [Concomitant]
     Dosage: DOSE: 2 PUFFS
     Route: 055
  15. COMBIVENT [Concomitant]
     Dosage: DOSE: 2 PUFFS
     Route: 055
  16. SINEMET [Concomitant]
     Dosage: DOSE: 100/25
  17. BASALJEL [Concomitant]
  18. ASPIRIN [Concomitant]
  19. NITRO-SPRAY [Concomitant]
  20. NITROGLYCERIN [Concomitant]
  21. SYNTHROID [Concomitant]
  22. D50 [Concomitant]
  23. GRAVOL TAB [Concomitant]
  24. COLACE [Concomitant]
  25. VENTOLIN [Concomitant]
     Dosage: DOSE: 2 PUFFS
  26. MOTILIUM [Concomitant]
  27. GLUCAGON [Concomitant]
     Route: 030

REACTIONS (1)
  - BLOOD PHOSPHORUS DECREASED [None]
